FAERS Safety Report 18033307 (Version 1)
Quarter: 2020Q3

REPORT INFORMATION
  Report Type: Spontaneous
  Country: US (occurrence: US)
  Receive Date: 20200716
  Receipt Date: 20200716
  Transmission Date: 20201103
  Serious: No
  Sender: FDA-Public Use
  Company Number: US-MATRIXX INITIATIVES, INC.-2087427

PATIENT
  Age: 29 Year
  Sex: Female
  Weight: 54.55 kg

DRUGS (1)
  1. ZICAM COLD REMEDY RAPIDMELTS [Suspect]
     Active Substance: HOMEOPATHICS\ZINC ACETATE ANHYDROUS\ZINC GLUCONATE
     Indication: THROAT IRRITATION
     Route: 048
     Dates: start: 20200714, end: 20200714

REACTIONS (1)
  - Ageusia [None]
